FAERS Safety Report 8018719-2 (Version None)
Quarter: 2012Q1

REPORT INFORMATION
  Report Type: 
  Country: None (occurrence: None)
  Receive Date: 20120103
  Receipt Date: 20120103
  Transmission Date: 20120608
  Serious: Yes (Other)
  Sender: FDA-Public Use
  Company Number: None

PATIENT
  Age: 40 Year
  Sex: Female
  Weight: 53.523 kg

DRUGS (3)
  1. AZITHROMYCIN [Suspect]
     Indication: INFLUENZA
     Dosage: 500 MG
     Route: 002
     Dates: start: 20111229, end: 20111231
  2. AZITHROMYCIN [Suspect]
     Indication: DISEASE COMPLICATION
     Dosage: 500 MG
     Route: 002
     Dates: start: 20111229, end: 20111231
  3. AZITHROMYCIN [Suspect]
     Indication: EAR INFECTION
     Dosage: 500 MG
     Route: 002
     Dates: start: 20111229, end: 20111231

REACTIONS (1)
  - RASH [None]
